FAERS Safety Report 12471328 (Version 2)
Quarter: 2016Q3

REPORT INFORMATION
  Report Type: Spontaneous
  Country: US (occurrence: US)
  Receive Date: 20160616
  Receipt Date: 20160725
  Transmission Date: 20161109
  Serious: Yes (Hospitalization)
  Sender: FDA-Public Use
  Company Number: US-PFIZER INC-2016288597

PATIENT
  Age: 71 Year
  Sex: Female

DRUGS (1)
  1. EFFEXOR XR [Suspect]
     Active Substance: VENLAFAXINE HYDROCHLORIDE
     Indication: DEPRESSION
     Dosage: 37.5 MG, 1X/DAY
     Dates: start: 20160420, end: 2016

REACTIONS (7)
  - Anxiety [Unknown]
  - Blood pressure increased [Unknown]
  - Malaise [Unknown]
  - Bruxism [Unknown]
  - Headache [Unknown]
  - Dry mouth [Unknown]
  - Abdominal pain upper [Unknown]

NARRATIVE: CASE EVENT DATE: 2016
